FAERS Safety Report 4515132-7 (Version None)
Quarter: 2004Q4

REPORT INFORMATION
  Report Type: 
  Country: None (occurrence: None)
  Receive Date: 20041126
  Receipt Date: 20041112
  Transmission Date: 20050328
  Serious: Yes (Hospitalization)
  Sender: FDA-Public Use
  Company Number: 200410231

PATIENT
  Age: 70 Year
  Sex: Male

DRUGS (8)
  1. ALESION (EPINASTINE) [Suspect]
     Indication: PRURITUS
     Dosage: 20 MG QD PO
     Route: 048
     Dates: start: 20040405, end: 20040614
  2. PRORENAL [Suspect]
     Indication: LUMBAR SPINAL STENOSIS
     Dosage: 15 MCG QD PO
     Route: 048
     Dates: start: 20031028, end: 20040614
  3. CYANOCOBALAMIN [Concomitant]
  4. NU LOTAN [Concomitant]
  5. ATP [Concomitant]
  6. KALLIKREIN [Concomitant]
  7. LACTULOSE [Concomitant]
  8. PARIET [Concomitant]

REACTIONS (5)
  - ALANINE AMINOTRANSFERASE INCREASED [None]
  - ASPARTATE AMINOTRANSFERASE [None]
  - CONDITION AGGRAVATED [None]
  - LIVER DISORDER [None]
  - PRURITUS [None]
